FAERS Safety Report 23029484 (Version 1)
Quarter: 2023Q4

REPORT INFORMATION
  Report Type: Spontaneous
  Country: CN (occurrence: CN)
  Receive Date: 20231004
  Receipt Date: 20231004
  Transmission Date: 20240110
  Serious: Yes (Other)
  Sender: FDA-Public Use
  Company Number: CN-PFIZER INC-PV202300162486

PATIENT
  Age: 1 Year
  Sex: Male

DRUGS (1)
  1. AZITHROMYCIN [Suspect]
     Active Substance: AZITHROMYCIN
     Indication: Pneumonia
     Dosage: 0.09 G, 1X/DAY
     Route: 048
     Dates: start: 20230917, end: 20230918

REACTIONS (4)
  - Infantile diarrhoea [Recovering/Resolving]
  - Discomfort [Unknown]
  - Abdominal tenderness [Unknown]
  - Abdominal distension [Recovering/Resolving]

NARRATIVE: CASE EVENT DATE: 20230901
